FAERS Safety Report 4958326-9 (Version None)
Quarter: 2006Q1

REPORT INFORMATION
  Report Type: 
  Country: None (occurrence: None)
  Receive Date: 20060329
  Receipt Date: 20060329
  Transmission Date: 20060701
  Serious: Yes (Hospitalization)
  Sender: FDA-Public Use
  Company Number: None

PATIENT
  Age: 58 Year
  Sex: Female
  Weight: 95.2554 kg

DRUGS (1)
  1. LEVOTHROID [Suspect]
     Dosage: 1 PILL DAILY PO
     Route: 048
     Dates: start: 20041101, end: 20050109

REACTIONS (5)
  - EYE DISORDER [None]
  - STRABISMUS [None]
  - THERAPEUTIC RESPONSE UNEXPECTED WITH DRUG SUBSTITUTION [None]
  - THYROID FUNCTION TEST ABNORMAL [None]
  - THYROIDITIS [None]
